FAERS Safety Report 13092037 (Version 1)
Quarter: 2017Q1

REPORT INFORMATION
  Report Type: Spontaneous
  Country: US (occurrence: US)
  Receive Date: 20170106
  Receipt Date: 20170106
  Transmission Date: 20170428
  Serious: No
  Sender: FDA-Public Use
  Company Number: US-DRREDDYS-USA/USA/16/0083294

PATIENT
  Sex: Male

DRUGS (2)
  1. HABITROL [Suspect]
     Active Substance: NICOTINE
     Route: 061
  2. HABITROL [Suspect]
     Active Substance: NICOTINE
     Indication: SMOKING CESSATION THERAPY
     Route: 061

REACTIONS (1)
  - Inappropriate schedule of drug administration [Unknown]
